FAERS Safety Report 19968289 (Version 5)
Quarter: 2022Q1

REPORT INFORMATION
  Report Type: Spontaneous
  Country: US (occurrence: US)
  Receive Date: 20211019
  Receipt Date: 20220125
  Transmission Date: 20220424
  Serious: No
  Sender: FDA-Public Use
  Company Number: US-SA-SAC20211015000935

PATIENT
  Age: 41 Year
  Sex: Female

DRUGS (6)
  1. DUPIXENT [Suspect]
     Active Substance: DUPILUMAB
     Indication: Dermatitis atopic
     Dosage: 600 MG, 1X
     Route: 058
     Dates: start: 20210712, end: 20210712
  2. DUPIXENT [Suspect]
     Active Substance: DUPILUMAB
     Dosage: 300 MG, OTHER
     Route: 058
     Dates: start: 2021
  3. IBUPROFEN [Concomitant]
     Active Substance: IBUPROFEN
     Indication: Injection site erythema
  4. IBUPROFEN [Concomitant]
     Active Substance: IBUPROFEN
     Indication: Injection site pain
  5. IBUPROFEN [Concomitant]
     Active Substance: IBUPROFEN
     Indication: Injection site swelling
  6. IBUPROFEN [Concomitant]
     Active Substance: IBUPROFEN
     Indication: Injection site reaction

REACTIONS (4)
  - Injection site erythema [Recovered/Resolved]
  - Injection site pain [Recovered/Resolved]
  - Injection site swelling [Recovered/Resolved]
  - Injection site reaction [Recovered/Resolved]

NARRATIVE: CASE EVENT DATE: 20210719
